FAERS Safety Report 15265117 (Version 1)
Quarter: 2018Q3

REPORT INFORMATION
  Report Type: Spontaneous
  Country: DE (occurrence: DE)
  Receive Date: 20180810
  Receipt Date: 20180810
  Transmission Date: 20181010
  Serious: Yes (Other)
  Sender: FDA-Public Use
  Company Number: DE-MYLANLABS-2018M1059756

PATIENT
  Age: 50 Year
  Sex: Female

DRUGS (2)
  1. SILYMARIN [Interacting]
     Active Substance: DIETARY SUPPLEMENT\HERBALS\MILK THISTLE
     Indication: TOOTH INFECTION
  2. CLINDAMYCIN. [Suspect]
     Active Substance: CLINDAMYCIN
     Indication: DENTAL DISCOMFORT

REACTIONS (2)
  - Liver injury [Recovering/Resolving]
  - Drug interaction [Recovering/Resolving]
